FAERS Safety Report 23977115 (Version 1)
Quarter: 2024Q2

REPORT INFORMATION
  Report Type: Spontaneous
  Country: CN (occurrence: CN)
  Receive Date: 20240614
  Receipt Date: 20240614
  Transmission Date: 20240716
  Serious: Yes (Other)
  Sender: FDA-Public Use
  Company Number: CN-009507513-2406CHN003711

PATIENT
  Age: 91 Year
  Sex: Male

DRUGS (2)
  1. CILASTATIN SODIUM\IMIPENEM [Suspect]
     Active Substance: CILASTATIN SODIUM\IMIPENEM
     Indication: Pneumonia
     Dosage: 0.5 GRAM, QD
     Route: 041
     Dates: start: 20240604, end: 20240606
  2. TIGECYCLINE [Concomitant]
     Active Substance: TIGECYCLINE
     Indication: Anti-infective therapy
     Dosage: 50 MG, Q12H
     Dates: start: 20240604

REACTIONS (3)
  - Epilepsy [Recovering/Resolving]
  - Seizure [Recovering/Resolving]
  - Gaze palsy [Recovering/Resolving]

NARRATIVE: CASE EVENT DATE: 20240606
